FAERS Safety Report 10187216 (Version 2)
Quarter: 2014Q2

REPORT INFORMATION
  Report Type: Spontaneous
  Country: US (occurrence: None)
  Receive Date: 20140520
  Receipt Date: 20140620
  Transmission Date: 20141212
  Serious: Yes (Hospitalization, Other)
  Sender: FDA-Public Use
  Company Number: AUR-APL-2014-05652

PATIENT
  Age: 54 Year
  Sex: 0
  Weight: 95 kg

DRUGS (4)
  1. MINOCYCLINE HYDROCHLORIDE [Suspect]
     Indication: DERMAL CYST
  2. ATORVASTATIN [Suspect]
     Indication: PRODUCT USED FOR UNKNOWN INDICATION
  3. OMEPRAZOLE (OMEPRAZOLE) [Concomitant]
  4. ASA (ACETYLSALICYLIC ACID) [Concomitant]

REACTIONS (15)
  - Autoimmune hepatitis [None]
  - Hepatitis acute [None]
  - Drug interaction [None]
  - Chest pain [None]
  - Back pain [None]
  - Hyperhidrosis [None]
  - Dyspnoea [None]
  - Skin discolouration [None]
  - Heart rate increased [None]
  - Haemodynamic instability [None]
  - Gallbladder disorder [None]
  - Periportal oedema [None]
  - Antinuclear antibody positive [None]
  - Pyrexia [None]
  - Abdominal distension [None]
